FAERS Safety Report 7074527-0 (Version None)
Quarter: 2010Q4

REPORT INFORMATION
  Report Type: 
  Country: None (occurrence: None)
  Receive Date: 20101029
  Receipt Date: 20101028
  Transmission Date: 20110411
  Serious: Yes (Hospitalization, Other)
  Sender: FDA-Public Use
  Company Number: US-PFIZER INC-2010006168

PATIENT
  Sex: Female
  Weight: 134 kg

DRUGS (13)
  1. CP-690,550 [Suspect]
     Indication: RHEUMATOID ARTHRITIS
     Dosage: 5 MG, 2X/DAY
     Route: 048
     Dates: start: 20100111, end: 20100115
  2. SOLU-MEDROL [Suspect]
     Indication: ANGIOEDEMA
     Dosage: 60 MG, UNK
     Route: 030
     Dates: start: 20100114, end: 20100116
  3. LISINOPRIL [Suspect]
     Indication: HYPERTENSION
     Dosage: 10 MG, 2X/DAY
     Route: 048
     Dates: start: 20100112, end: 20100115
  4. PREDNISONE [Concomitant]
     Indication: RHEUMATOID ARTHRITIS
     Dosage: 10 MG, 1X/DAY
     Route: 048
     Dates: start: 20091129
  5. ARAVA [Concomitant]
     Indication: RHEUMATOID ARTHRITIS
     Dosage: 20 MG, 1X/DAY
     Route: 048
     Dates: start: 20090925
  6. LASIX [Concomitant]
     Indication: LYMPHOEDEMA
     Dosage: 40 MG, 1X/DAY
     Route: 048
     Dates: start: 20100111
  7. K-DUR [Concomitant]
     Indication: LYMPHOEDEMA
     Dosage: 40 MG, 1X/DAY
     Route: 048
     Dates: start: 20100111
  8. TYLENOL (CAPLET) [Concomitant]
     Indication: RHEUMATOID ARTHRITIS
     Dosage: 650 MG, AS NEEDED
     Route: 048
     Dates: start: 20090708
  9. DARVOCET-N 100 [Concomitant]
     Indication: RHEUMATOID ARTHRITIS
     Dosage: UNK
     Route: 048
     Dates: start: 20070501
  10. VITAMIN D [Concomitant]
     Indication: SUPPLEMENTATION THERAPY
     Dosage: 1000 MG, 1X/DAY
     Route: 048
     Dates: start: 20091001
  11. PHENDIMETRAZINE [Concomitant]
     Indication: WEIGHT DECREASED
     Dosage: 105 MG, 1X/DAY
     Route: 048
     Dates: start: 20091130, end: 20100106
  12. PEPCID [Concomitant]
     Indication: PROPHYLAXIS
     Dosage: 20 MG, 1X/DAY
     Dates: start: 20100115
  13. TOPIRAMATE [Concomitant]
     Indication: WEIGHT DECREASED
     Dosage: 25 MG, 1X/DAY
     Route: 048
     Dates: start: 20091130, end: 20100106

REACTIONS (2)
  - ANGINA PECTORIS [None]
  - ANGIOEDEMA [None]
